FAERS Safety Report 22000637 (Version 1)
Quarter: 2023Q1

REPORT INFORMATION
  Report Type: Report from Study
  Country: US (occurrence: None)
  Receive Date: 20230216
  Receipt Date: 20230216
  Transmission Date: 20230418
  Serious: Yes (Hospitalization)
  Sender: FDA-Public Use
  Company Number: 2023A034142

PATIENT
  Age: 2570 Day
  Sex: Male
  Weight: 20.5 kg

DRUGS (2)
  1. KOSELUGO [Suspect]
     Active Substance: SELUMETINIB
     Indication: Benign peripheral nerve sheath tumour
     Route: 048
     Dates: start: 20220828, end: 20230128
  2. KOSELUGO [Suspect]
     Active Substance: SELUMETINIB
     Indication: Benign peripheral nerve sheath tumour
     Route: 048

REACTIONS (2)
  - Pharyngitis streptococcal [Recovered/Resolved]
  - Product dose omission issue [Recovered/Resolved]

NARRATIVE: CASE EVENT DATE: 20230128
